FAERS Safety Report 9671911 (Version 3)
Quarter: 2013Q4

REPORT INFORMATION
  Report Type: Spontaneous
  Country: GB (occurrence: GB)
  Receive Date: 20131106
  Receipt Date: 20131121
  Transmission Date: 20140711
  Serious: Yes (Other)
  Sender: FDA-Public Use
  Company Number: GB-BRISTOL-MYERS SQUIBB COMPANY-19215342

PATIENT
  Age: 46 Year
  Sex: Male

DRUGS (3)
  1. SPRYCEL [Suspect]
     Indication: CHRONIC MYELOID LEUKAEMIA
     Route: 048
     Dates: start: 20090805, end: 201309
  2. PRAVASTATIN SODIUM [Suspect]
     Indication: PERIPHERAL VASCULAR DISORDER
     Dates: start: 201210, end: 201307
  3. PRAVASTATIN SODIUM [Suspect]
     Indication: BLOOD CHOLESTEROL
     Dates: start: 201210, end: 201307

REACTIONS (5)
  - Peripheral artery stenosis [Unknown]
  - Blood creatine phosphokinase increased [Not Recovered/Not Resolved]
  - Rheumatoid factor increased [Not Recovered/Not Resolved]
  - Musculoskeletal pain [Not Recovered/Not Resolved]
  - Joint stiffness [Not Recovered/Not Resolved]
